FAERS Safety Report 18981597 (Version 1)
Quarter: 2021Q1

REPORT INFORMATION
  Report Type: Spontaneous
  Country: JP (occurrence: JP)
  Receive Date: 20210308
  Receipt Date: 20210308
  Transmission Date: 20210420
  Serious: Yes (Other)
  Sender: FDA-Public Use
  Company Number: JP-OTSUKA-2021_006561

PATIENT
  Sex: Female

DRUGS (1)
  1. ABILIFY [Suspect]
     Active Substance: ARIPIPRAZOLE
     Indication: SCHIZOPHRENIA
     Dosage: UNK
     Route: 065

REACTIONS (7)
  - Withdrawal syndrome [Unknown]
  - Anxiety [Unknown]
  - Paraesthesia [Unknown]
  - Pain [Unknown]
  - Therapy cessation [Unknown]
  - Mitral valve incompetence [Unknown]
  - Suicidal ideation [Unknown]
